FAERS Safety Report 13028513 (Version 2)
Quarter: 2016Q4

REPORT INFORMATION
  Report Type: Spontaneous
  Country: US (occurrence: US)
  Receive Date: 20161214
  Receipt Date: 20161215
  Transmission Date: 20170207
  Serious: Yes (Hospitalization, Other)
  Sender: FDA-Public Use
  Company Number: PHHY2016US166709

PATIENT
  Age: 67 Year
  Sex: Male

DRUGS (24)
  1. PROPOFOL. [Suspect]
     Active Substance: PROPOFOL
     Dosage: 5 MG/KG/MIN, UNK
     Route: 065
  2. VALPROIC ACID SANDOZ [Suspect]
     Active Substance: VALPROIC ACID
     Dosage: 500 MG, Q8H
     Route: 042
  3. PHENOBARBITAL. [Suspect]
     Active Substance: PHENOBARBITAL
     Indication: SEIZURE
     Dosage: 300 MG, UNK
     Route: 042
  4. PHENYTOIN. [Suspect]
     Active Substance: PHENYTOIN
     Indication: SEIZURE
     Dosage: 1 G, UNK
     Route: 040
  5. VALPROIC ACID SANDOZ [Suspect]
     Active Substance: VALPROIC ACID
     Dosage: 1000 MG, BID
     Route: 065
  6. PROPOFOL. [Suspect]
     Active Substance: PROPOFOL
     Dosage: 2 MG/KG/MIN, UNK
     Route: 065
  7. DEXAMETHASONE. [Concomitant]
     Active Substance: DEXAMETHASONE
     Indication: PRODUCT USED FOR UNKNOWN INDICATION
     Dosage: 10 MG, Q6H
     Route: 042
  8. CLOPIDOGREL [Concomitant]
     Active Substance: CLOPIDOGREL BISULFATE
     Indication: PRODUCT USED FOR UNKNOWN INDICATION
     Dosage: UNK
     Route: 065
  9. CARBAMAZEPINE. [Suspect]
     Active Substance: CARBAMAZEPINE
     Indication: SEIZURE
     Dosage: 200 MG, Q8H
     Route: 065
  10. LEVETIRACETAM. [Suspect]
     Active Substance: LEVETIRACETAM
     Dosage: 750 MG, UNK
     Route: 065
  11. PHENYTOIN. [Suspect]
     Active Substance: PHENYTOIN
     Dosage: 300 MG, BID
     Route: 065
  12. VALPROIC ACID SANDOZ [Suspect]
     Active Substance: VALPROIC ACID
     Dosage: 750 MG, Q8H
     Route: 065
  13. PHENYTOIN. [Suspect]
     Active Substance: PHENYTOIN
     Dosage: 200 MG, Q8H
     Route: 065
  14. PHENYTOIN. [Suspect]
     Active Substance: PHENYTOIN
     Dosage: 100 MG, Q8H
     Route: 042
  15. MIDAZOLAM [Suspect]
     Active Substance: MIDAZOLAM\MIDAZOLAM HYDROCHLORIDE
     Indication: SEIZURE
     Dosage: 1 MG/H, UNK
     Route: 041
  16. LEVETIRACETAM. [Suspect]
     Active Substance: LEVETIRACETAM
     Indication: SEIZURE
     Dosage: 500 MG, BID
     Route: 042
  17. PHENYTOIN. [Suspect]
     Active Substance: PHENYTOIN
     Dosage: 3 DF (200 MG), UNK
     Route: 040
  18. PHENYTOIN. [Suspect]
     Active Substance: PHENYTOIN
     Dosage: 200 MG, Q6H
     Route: 065
  19. VALPROIC ACID SANDOZ [Suspect]
     Active Substance: VALPROIC ACID
     Indication: SEIZURE
     Dosage: 1 G, UNK
     Route: 065
  20. MIDAZOLAM [Suspect]
     Active Substance: MIDAZOLAM\MIDAZOLAM HYDROCHLORIDE
     Indication: SEDATION
     Dosage: 2.5 MG/H, UNK
     Route: 041
  21. CARBAMAZEPINE. [Suspect]
     Active Substance: CARBAMAZEPINE
     Dosage: 400 MG, Q8H
     Route: 065
  22. PHENOBARBITAL. [Suspect]
     Active Substance: PHENOBARBITAL
     Dosage: 150 MG, Q8H
     Route: 042
  23. PHENOBARBITAL. [Suspect]
     Active Substance: PHENOBARBITAL
     Dosage: 300 MG, Q12H
     Route: 042
  24. PROPOFOL. [Suspect]
     Active Substance: PROPOFOL
     Indication: SEIZURE
     Dosage: 100 MG (1.5 MG/KG), UNK
     Route: 040

REACTIONS (8)
  - Toxicity to various agents [Recovering/Resolving]
  - Coma [Unknown]
  - Seizure [Unknown]
  - Status epilepticus [Recovered/Resolved]
  - Trismus [Recovered/Resolved]
  - Cardiotoxicity [Unknown]
  - Muscle twitching [Recovered/Resolved]
  - Bradycardia [Unknown]
